FAERS Safety Report 17351099 (Version 1)
Quarter: 2020Q1

REPORT INFORMATION
  Report Type: Spontaneous
  Country: ES (occurrence: ES)
  Receive Date: 20200130
  Receipt Date: 20200130
  Transmission Date: 20200409
  Serious: Yes (Other)
  Sender: FDA-Public Use
  Company Number: ES-AMGEN-ESPSP2020013770

PATIENT
  Age: 68 Year
  Sex: Female
  Weight: 55 kg

DRUGS (4)
  1. CIDINE [CIMETIDINE] [Concomitant]
     Dosage: UNK
  2. OMEPRAZOL [OMEPRAZOLE] [Concomitant]
     Active Substance: OMEPRAZOLE
     Dosage: UNK
  3. CRESTOR [Concomitant]
     Active Substance: ROSUVASTATIN CALCIUM
     Dosage: UNK
  4. PROLIA [Suspect]
     Active Substance: DENOSUMAB
     Indication: OSTEOPENIA
     Dosage: 60 MILLIGRAM, Q6MO
     Route: 058
     Dates: start: 20141121

REACTIONS (1)
  - Multiple fractures [Unknown]

NARRATIVE: CASE EVENT DATE: 2020
